FAERS Safety Report 22395136 (Version 1)
Quarter: 2023Q2

REPORT INFORMATION
  Report Type: Spontaneous
  Country: NO (occurrence: NO)
  Receive Date: 20230601
  Receipt Date: 20230601
  Transmission Date: 20230722
  Serious: Yes (Hospitalization, Other)
  Sender: FDA-Public Use
  Company Number: NO-ORG100013279-013050

PATIENT
  Age: 52 Year
  Sex: Female

DRUGS (3)
  1. PANTOPRAZOLE SODIUM [Suspect]
     Active Substance: PANTOPRAZOLE SODIUM
     Indication: Prophylaxis
     Dosage: 20 MILLIGRAM, QD
     Route: 065
     Dates: start: 202201
  2. COLCHICINE [Suspect]
     Active Substance: COLCHICINE
     Indication: Viral pericarditis
     Dosage: 0.5 MILLIGRAM, Q12H
     Route: 065
     Dates: start: 202201, end: 202201
  3. IBUPROFEN [Suspect]
     Active Substance: IBUPROFEN
     Indication: Viral pericarditis
     Dosage: 600 MILLIGRAM, TID
     Route: 065
     Dates: start: 202201, end: 202201

REACTIONS (4)
  - Condition aggravated [Unknown]
  - Palpitations [Recovering/Resolving]
  - Pericardial effusion [Recovering/Resolving]
  - Gastrooesophageal reflux disease [Unknown]

NARRATIVE: CASE EVENT DATE: 20220101
